FAERS Safety Report 24451044 (Version 1)
Quarter: 2024Q4

REPORT INFORMATION
  Report Type: Spontaneous
  Country: US (occurrence: US)
  Receive Date: 20241017
  Receipt Date: 20241017
  Transmission Date: 20250115
  Serious: Yes (Other)
  Sender: LUPIN
  Company Number: US-LUPIN PHARMACEUTICALS INC.-2024-10088

PATIENT
  Age: 65 Year
  Sex: Male

DRUGS (14)
  1. FLUCONAZOLE [Suspect]
     Active Substance: FLUCONAZOLE
     Indication: Dermatophytosis
     Dosage: 200 MILLIGRAM, QD
     Route: 048
  2. FLUCONAZOLE [Suspect]
     Active Substance: FLUCONAZOLE
     Indication: Trichophytosis
  3. CLOBETASOL PROPIONATE [Suspect]
     Active Substance: CLOBETASOL PROPIONATE
     Indication: Dermatophytosis
     Dosage: UNK
     Route: 061
  4. CLOBETASOL PROPIONATE [Suspect]
     Active Substance: CLOBETASOL PROPIONATE
     Indication: Trichophytosis
  5. TERBINAFINE [Suspect]
     Active Substance: TERBINAFINE\TERBINAFINE HYDROCHLORIDE
     Indication: Dermatophytosis
     Dosage: 250 MILLIGRAM, QD
     Route: 048
  6. TERBINAFINE [Suspect]
     Active Substance: TERBINAFINE\TERBINAFINE HYDROCHLORIDE
     Indication: Trichophytosis
     Dosage: 250 MILLIGRAM, QD
     Route: 048
  7. CLOTRIMAZOLE [Suspect]
     Active Substance: CLOTRIMAZOLE
     Indication: Dermatophytosis
     Dosage: UNK, CREAM 1%
     Route: 061
  8. CLOTRIMAZOLE [Suspect]
     Active Substance: CLOTRIMAZOLE
     Indication: Trichophytosis
  9. FLUOCINONIDE [Suspect]
     Active Substance: FLUOCINONIDE
     Indication: Dermatophytosis
     Dosage: UNK
     Route: 061
  10. FLUOCINONIDE [Suspect]
     Active Substance: FLUOCINONIDE
     Indication: Trichophytosis
  11. GRISEOFULVIN [Suspect]
     Active Substance: GRISEOFULVIN
     Indication: Dermatophytosis
     Dosage: 500 MILLIGRAM, QD, MICROSIZE
     Route: 048
  12. GRISEOFULVIN [Suspect]
     Active Substance: GRISEOFULVIN
     Indication: Trichophytosis
  13. PREDNISONE [Suspect]
     Active Substance: PREDNISONE
     Indication: Dermatophytosis
     Dosage: 60 MILLIGRAM, QD
     Route: 048
  14. PREDNISONE [Suspect]
     Active Substance: PREDNISONE
     Indication: Trichophytosis
     Dosage: UNK, DOSE TAPER (UNSPECIFIED)
     Route: 048

REACTIONS (3)
  - Multiple-drug resistance [Unknown]
  - Drug ineffective [Unknown]
  - Off label use [Unknown]
